FAERS Safety Report 13587200 (Version 2)
Quarter: 2017Q3

REPORT INFORMATION
  Report Type: Other
  Country: US (occurrence: US)
  Receive Date: 20170526
  Receipt Date: 20170924
  Transmission Date: 20171127
  Serious: No
  Sender: FDA-Public Use
  Company Number: US-APOTEX-2017AP010685

PATIENT
  Age: 35 Year
  Sex: Female

DRUGS (2)
  1. CLARISPRAY NASAL ALLERGY [Suspect]
     Active Substance: FLUTICASONE PROPIONATE
     Indication: VIRAL UPPER RESPIRATORY TRACT INFECTION
     Dosage: 1-2 SPRAYS IN EACH NOSTRIL DAILY
     Route: 045
  2. CLARISPRAY NASAL ALLERGY [Suspect]
     Active Substance: FLUTICASONE PROPIONATE
     Indication: HYPERSENSITIVITY
     Dosage: TWO SPRAYS IN EACH NOSTRIL ONCE DAILY
     Route: 045

REACTIONS (2)
  - Drug ineffective [Unknown]
  - Product label confusion [Unknown]
